FAERS Safety Report 24106764 (Version 1)
Quarter: 2024Q3

REPORT INFORMATION
  Report Type: Spontaneous
  Country: EU (occurrence: EU)
  Receive Date: 20240717
  Receipt Date: 20240717
  Transmission Date: 20241017
  Serious: Yes (Other)
  Sender: BAUSCH AND LOMB
  Company Number: IT-AMGEN-ITANI2024125327

PATIENT

DRUGS (3)
  1. DEXAMETHASONE SODIUM PHOSPHATE [Suspect]
     Active Substance: DEXAMETHASONE PHOSPHATE\DEXAMETHASONE SODIUM PHOSPHATE
     Indication: Plasma cell myeloma
     Route: 065
     Dates: end: 20190114
  2. CARFILZOMIB [Suspect]
     Active Substance: CARFILZOMIB
     Indication: Plasma cell myeloma
     Route: 065
     Dates: start: 20180913, end: 20190114
  3. LENALIDOMIDE [Suspect]
     Active Substance: LENALIDOMIDE
     Indication: Plasma cell myeloma
     Dosage: UNK
     Route: 065
     Dates: end: 20190114

REACTIONS (11)
  - Pulmonary embolism [Recovered/Resolved]
  - Pneumonia [Recovered/Resolved]
  - Rash pruritic [Unknown]
  - Pain [Unknown]
  - Asthenia [Recovered/Resolved]
  - Venous thrombosis [Unknown]
  - Respiratory tract infection [Recovered/Resolved]
  - Thrombophlebitis [Unknown]
  - Bronchitis [Recovered/Resolved]
  - Diarrhoea [Recovered/Resolved]
  - Pyrexia [Recovered/Resolved]

NARRATIVE: CASE EVENT DATE: 20180915
